FAERS Safety Report 24432300 (Version 3)
Quarter: 2024Q4

REPORT INFORMATION
  Report Type: Spontaneous
  Country: JP (occurrence: JP)
  Receive Date: 20241014
  Receipt Date: 20241107
  Transmission Date: 20250114
  Serious: Yes (Hospitalization)
  Sender: AMGEN
  Company Number: JP-KYOWAKIRIN-2024KK022781

PATIENT
  Age: 7 Decade
  Sex: Female

DRUGS (11)
  1. PEGFILGRASTIM [Suspect]
     Active Substance: PEGFILGRASTIM
     Indication: Colony stimulating factor therapy
     Dosage: 3.6 MG, AFTER SECOND COURSE CHEMOTHERAPY
     Route: 058
     Dates: start: 20240912, end: 20240912
  2. PEGFILGRASTIM [Suspect]
     Active Substance: PEGFILGRASTIM
     Dosage: 3.6 MG, AFTER THIRD COURSE CHEMOTHERAPY
     Route: 058
     Dates: start: 20240926, end: 20240926
  3. PEGFILGRASTIM [Suspect]
     Active Substance: PEGFILGRASTIM
     Dosage: 3.6 MG, AFTER FOURTH COURSE CHEMOTHERAPY
     Route: 058
     Dates: start: 20241010
  4. EPIRUBICIN HYDROCHLORIDE [Suspect]
     Active Substance: EPIRUBICIN HYDROCHLORIDE
     Indication: Breast cancer
     Dosage: FIRST COURSE
     Route: 041
     Dates: start: 20240828, end: 20240828
  5. EPIRUBICIN HYDROCHLORIDE [Suspect]
     Active Substance: EPIRUBICIN HYDROCHLORIDE
     Dosage: SECOND COURSE
     Route: 041
     Dates: start: 20240911, end: 20240911
  6. EPIRUBICIN HYDROCHLORIDE [Suspect]
     Active Substance: EPIRUBICIN HYDROCHLORIDE
     Dosage: THIRD COURSE
     Route: 041
     Dates: start: 20240925, end: 20240925
  7. EPIRUBICIN HYDROCHLORIDE [Suspect]
     Active Substance: EPIRUBICIN HYDROCHLORIDE
     Dosage: FOURTH COURSE
     Route: 041
     Dates: start: 20241009, end: 20241009
  8. CYCLOPHOSPHAMIDE [Suspect]
     Active Substance: CYCLOPHOSPHAMIDE
     Indication: Breast cancer
     Dosage: FIRST COURSE
     Route: 041
     Dates: start: 20240828, end: 20240828
  9. CYCLOPHOSPHAMIDE [Suspect]
     Active Substance: CYCLOPHOSPHAMIDE
     Dosage: SECOND COURSE
     Route: 041
     Dates: start: 20240911, end: 20240911
  10. CYCLOPHOSPHAMIDE [Suspect]
     Active Substance: CYCLOPHOSPHAMIDE
     Dosage: THIRD COURSE
     Route: 041
     Dates: start: 20240925, end: 20240925
  11. CYCLOPHOSPHAMIDE [Suspect]
     Active Substance: CYCLOPHOSPHAMIDE
     Dosage: FOURTH COURSE
     Route: 041
     Dates: start: 20241009, end: 20241009

REACTIONS (1)
  - Malaise [Recovered/Resolved]

NARRATIVE: CASE EVENT DATE: 20240925
